FAERS Safety Report 17545975 (Version 1)
Quarter: 2020Q1

REPORT INFORMATION
  Report Type: Report from Study
  Country: GB (occurrence: GB)
  Receive Date: 20200316
  Receipt Date: 20200316
  Transmission Date: 20200409
  Serious: Yes (Life-Threatening, Hospitalization)
  Sender: FDA-Public Use
  Company Number: GB-MYLANLABS-2020M1026670

PATIENT
  Age: 42 Year
  Sex: Female

DRUGS (82)
  1. PERTUZUMAB. [Suspect]
     Active Substance: PERTUZUMAB
     Dosage: 420 MILLIGRAM
     Route: 042
     Dates: start: 20160808, end: 20160830
  2. PARACETAMOL [Concomitant]
     Active Substance: ACETAMINOPHEN
     Dosage: UNK
  3. SANDOCAL 1000 [Concomitant]
     Dosage: UNK
  4. ZOPICLONE [Concomitant]
     Active Substance: ZOPICLONE
     Dosage: UNK
  5. MIDAZOLAM HYDROCHLORIDE. [Concomitant]
     Active Substance: MIDAZOLAM HYDROCHLORIDE
     Dosage: UNK
  6. CITALOPRAM [Concomitant]
     Active Substance: CITALOPRAM HYDROBROMIDE
     Indication: DEPRESSION
     Dosage: UNK
  7. MAGNESIUM ASPARTATE [Concomitant]
     Active Substance: MAGNESIUM ASPARTATE
     Dosage: UNK
  8. VASOPRESSIN. [Concomitant]
     Active Substance: VASOPRESSIN
     Dosage: UNK
  9. ARGATROBAN. [Concomitant]
     Active Substance: ARGATROBAN
     Dosage: UNK
  10. ERDOTIN [Concomitant]
     Active Substance: ERDOSTEINE
     Dosage: UNK
  11. LANSOPRAZOLE. [Concomitant]
     Active Substance: LANSOPRAZOLE
     Dosage: UNK
  12. TRASTUZUMAB. [Suspect]
     Active Substance: TRASTUZUMAB
     Dosage: 588 MILLIGRAM, MONTHLY
     Route: 042
     Dates: start: 20160808, end: 20160808
  13. BUSCOPAN [Concomitant]
     Active Substance: BUTYLSCOPOLAMINE BROMIDE
     Dosage: UNK
  14. ERDOSTEINE [Concomitant]
     Active Substance: ERDOSTEINE
     Dosage: UNK
  15. OMEPRAZOLE. [Concomitant]
     Active Substance: OMEPRAZOLE
     Dosage: UNK
  16. CODEINE [Concomitant]
     Active Substance: CODEINE
     Dosage: UNK
  17. SANDO K                            /00209301/ [Concomitant]
     Active Substance: POTASSIUM BICARBONATE\POTASSIUM CHLORIDE
     Dosage: UNK
  18. HYDROCORTISONE. [Concomitant]
     Active Substance: HYDROCORTISONE
     Dosage: UNK
  19. SALBUTAMOL [Concomitant]
     Active Substance: ALBUTEROL
     Dosage: UNK
  20. GTN [Concomitant]
     Active Substance: NITROGLYCERIN
     Dosage: UNK
  21. MAGNESIUM SULFATE. [Concomitant]
     Active Substance: MAGNESIUM SULFATE
     Dosage: UNK
  22. TAZOCIN [Concomitant]
     Active Substance: PIPERACILLIN SODIUM\TAZOBACTAM SODIUM
     Dosage: UNK
  23. MORPHINE SULPHATE [Concomitant]
     Active Substance: MORPHINE SULFATE
     Dosage: UNK
  24. FRUSEMIDE                          /00032601/ [Concomitant]
     Active Substance: FUROSEMIDE
     Dosage: UNK
  25. FONDAPARINUX [Concomitant]
     Active Substance: FONDAPARINUX
     Dosage: UNK
  26. DANAPAROID [Concomitant]
     Active Substance: DANAPAROID
     Dosage: UNK
  27. DANAPAROID [Concomitant]
     Active Substance: DANAPAROID
     Dosage: UNK
  28. OXYNORM [Concomitant]
     Active Substance: OXYCODONE HYDROCHLORIDE
     Dosage: UNK
  29. ALFENTANIL. [Concomitant]
     Active Substance: ALFENTANIL
     Dosage: UNK
  30. CHLORPHENAMINE [Concomitant]
     Active Substance: CHLORPHENIRAMINE MALEATE
     Dosage: UNK
  31. CLOPIDOGREL [Concomitant]
     Active Substance: CLOPIDOGREL BISULFATE
     Dosage: UNK
  32. ASPIRIN                            /00002701/ [Concomitant]
     Active Substance: ASPIRIN
     Dosage: UNK
  33. LEVOMEPROMAZINE [Concomitant]
     Active Substance: LEVOMEPROMAZINE
     Dosage: UNK
  34. MORPHINE [Concomitant]
     Active Substance: MORPHINE
     Dosage: UNK
  35. TRASTUZUMAB. [Suspect]
     Active Substance: TRASTUZUMAB
     Indication: HER-2 POSITIVE BREAST CANCER
     Dosage: 798 MILLIGRAM, MONTHLY
     Route: 042
     Dates: start: 20160718, end: 20160718
  36. BISOPROLOL [Concomitant]
     Active Substance: BISOPROLOL
     Dosage: UNK
  37. CIPROFLOXACIN. [Concomitant]
     Active Substance: CIPROFLOXACIN
     Dosage: UNK
  38. OXYNORM [Concomitant]
     Active Substance: OXYCODONE HYDROCHLORIDE
     Dosage: UNK
  39. TOLTERODINE [Concomitant]
     Active Substance: TOLTERODINE
     Dosage: UNK
  40. DIAZEPAM. [Concomitant]
     Active Substance: DIAZEPAM
     Dosage: UNK
     Route: 048
  41. FRAGMIN [Concomitant]
     Active Substance: DALTEPARIN SODIUM
     Dosage: UNK
  42. EPOPROSTENOL. [Concomitant]
     Active Substance: EPOPROSTENOL
     Dosage: UNK
  43. FILGRASTIM [Concomitant]
     Active Substance: FILGRASTIM
     Dosage: UNK
  44. TAUROLOCK [Concomitant]
     Active Substance: TAUROLIDINE
     Dosage: UNK
  45. LETROZOLE. [Suspect]
     Active Substance: LETROZOLE
     Indication: HER-2 POSITIVE BREAST CANCER
     Dosage: 2.5 MILLIGRAM, QD
     Route: 048
     Dates: start: 20170124
  46. LOPERAMIDE [Concomitant]
     Active Substance: LOPERAMIDE
     Dosage: UNK
  47. METOCLOPRAMIDE. [Concomitant]
     Active Substance: METOCLOPRAMIDE
     Dosage: UNK
  48. NASEPTIN [Concomitant]
     Active Substance: CHLORHEXIDINE HYDROCHLORIDE\NEOMYCIN SULFATE
     Dosage: UNK
  49. GLUCOGEL [Concomitant]
     Dosage: UNK
  50. METRONIDAZOLE. [Concomitant]
     Active Substance: METRONIDAZOLE
     Dosage: UNK
  51. ALTEPLASE. [Concomitant]
     Active Substance: ALTEPLASE
     Dosage: UNK
     Route: 065
  52. POTASSIUM CHLORIDE. [Concomitant]
     Active Substance: POTASSIUM CHLORIDE
     Dosage: UNK
  53. METARAMINOL [Concomitant]
     Active Substance: METARAMINOL
     Dosage: UNK
  54. MAGNASPARTATE [Concomitant]
     Dosage: UNK
  55. DIHYDROCODEINE [Concomitant]
     Active Substance: DIHYDROCODEINE
     Indication: PAIN
     Dosage: UNK
  56. GENTAMICIN. [Concomitant]
     Active Substance: GENTAMICIN
     Dosage: UNK
  57. CYCLIZINE [Concomitant]
     Active Substance: CYCLIZINE
     Dosage: UNK
  58. ORAMORPH [Concomitant]
     Active Substance: MORPHINE SULFATE
     Dosage: UNK
  59. GLUCOSE [Concomitant]
     Active Substance: DEXTROSE
     Dosage: UNK
     Route: 042
  60. HARTMANS [Concomitant]
     Dosage: UNK
  61. BONJELA                            /01627201/ [Concomitant]
     Dosage: UNK
  62. MEROPENEM. [Concomitant]
     Active Substance: MEROPENEM
     Dosage: UNK
  63. DOXYCYCLINE. [Concomitant]
     Active Substance: DOXYCYCLINE
     Dosage: UNK
  64. DALTEPARIN [Concomitant]
     Active Substance: DALTEPARIN
     Dosage: UNK
  65. PROPOFOL. [Concomitant]
     Active Substance: PROPOFOL
     Dosage: UNK
  66. NORADRENALINE                      /00127501/ [Concomitant]
     Active Substance: NOREPINEPHRINE
     Dosage: UNK
  67. TRASTUZUMAB. [Suspect]
     Active Substance: TRASTUZUMAB
     Dosage: 609 MILLIGRAM, MONTHLY
     Route: 041
     Dates: start: 20160830, end: 20160830
  68. DOXYCYCLINE. [Suspect]
     Active Substance: DOXYCYCLINE
     Indication: HER-2 POSITIVE BREAST CANCER
     Dosage: 160 MILLIGRAM, MONTHLY
     Route: 042
     Dates: start: 20160718
  69. FLUCONAZOLE. [Concomitant]
     Active Substance: FLUCONAZOLE
     Dosage: UNK
  70. CHLORHEXIDINE [Concomitant]
     Active Substance: CHLORHEXIDINE
     Dosage: UNK
  71. ONDANSETRON [Concomitant]
     Active Substance: ONDANSETRON
     Dosage: UNK
  72. DEXTROSE. [Concomitant]
     Active Substance: DEXTROSE
     Dosage: UNK
  73. CITALOPRAM [Concomitant]
     Active Substance: CITALOPRAM HYDROBROMIDE
     Dosage: UNK
  74. TEICOPLANIN [Concomitant]
     Active Substance: TEICOPLANIN
     Dosage: UNK
  75. ALFENTANIL. [Concomitant]
     Active Substance: ALFENTANIL
     Dosage: UNK
  76. CYCLIZINE [Concomitant]
     Active Substance: CYCLIZINE
     Indication: NAUSEA
     Dosage: UNK
  77. RAMIPRIL. [Concomitant]
     Active Substance: RAMIPRIL
     Dosage: UNK
  78. HEPARIN [Concomitant]
     Active Substance: HEPARIN SODIUM
     Dosage: UNK
  79. CALCIUM GLUCONATE. [Concomitant]
     Active Substance: CALCIUM GLUCONATE
     Dosage: UNK
  80. ERYTHROMYCIN. [Concomitant]
     Active Substance: ERYTHROMYCIN
     Dosage: UNK
  81. TRANEXAMIC ACID. [Concomitant]
     Active Substance: TRANEXAMIC ACID
     Dosage: UNK
  82. PERTUZUMAB. [Suspect]
     Active Substance: PERTUZUMAB
     Indication: HER-2 POSITIVE BREAST CANCER
     Dosage: 840 MILLIGRAM
     Route: 042
     Dates: start: 20160718, end: 20160718

REACTIONS (1)
  - Colitis [Recovered/Resolved]

NARRATIVE: CASE EVENT DATE: 20160907
